FAERS Safety Report 4485067-7 (Version None)
Quarter: 2004Q4

REPORT INFORMATION
  Report Type: 
  Country: None (occurrence: None)
  Receive Date: 20040921
  Receipt Date: 20031030
  Transmission Date: 20050328
  Serious: Yes (Hospitalization, Other)
  Sender: FDA-Public Use
  Company Number: 163-20785-03010309(1)

PATIENT
  Age: 55 Year
  Sex: Male
  Weight: 63 kg

DRUGS (6)
  1. THALOMID [Suspect]
     Indication: MULTIPLE MYELOMA
     Dosage: 150-50 MG, DAILY, ORAL
     Route: 048
     Dates: start: 20020917
  2. PREDNISONE [Suspect]
     Indication: MULTIPLE MYELOMA
     Dosage: 50 MG, QOD
     Dates: start: 20020917
  3. DOXIL [Suspect]
     Indication: MULTIPLE MYELOMA
     Dosage: SEE IMAGE
     Dates: start: 20010201, end: 20010813
  4. DOXIL [Suspect]
     Indication: MULTIPLE MYELOMA
     Dosage: SEE IMAGE
     Dates: start: 20020201, end: 20020819
  5. VINCRISTINE [Suspect]
     Indication: MULTIPLE MYELOMA
     Dosage: 2 MG, INTRAVENOUS
     Route: 042
     Dates: start: 20020201, end: 20020819
  6. DECADRON [Suspect]
     Dosage: 40 MG, X 4 DAYS, ORAL
     Route: 048
     Dates: start: 20020201, end: 20020819

REACTIONS (6)
  - DEEP VEIN THROMBOSIS [None]
  - RETINAL DETACHMENT [None]
  - RETINAL TEAR [None]
  - VISUAL DISTURBANCE [None]
  - VITREOUS HAEMORRHAGE [None]
  - VITREOUS OPACITIES [None]
